FAERS Safety Report 8042983-7 (Version None)
Quarter: 2012Q1

REPORT INFORMATION
  Report Type: 
  Country: None (occurrence: None)
  Receive Date: 20120112
  Receipt Date: 20120109
  Transmission Date: 20120608
  Serious: Yes (Death, Hospitalization)
  Sender: FDA-Public Use
  Company Number: CA-ELI_LILLY_AND_COMPANY-CA201111000548

PATIENT
  Sex: Female

DRUGS (2)
  1. HUMALOG MIX 75/25 [Suspect]
     Dosage: UNK, UNKNOWN
  2. HUMULIN 70/30 [Suspect]
     Dosage: UNK UNK, UNKNOWN
     Dates: start: 20101101

REACTIONS (5)
  - DEATH [None]
  - DIABETIC KETOACIDOSIS [None]
  - DRUG INEFFECTIVE [None]
  - DIABETES MELLITUS INADEQUATE CONTROL [None]
  - BLOOD GLUCOSE INCREASED [None]
